FAERS Safety Report 24282855 (Version 1)
Quarter: 2024Q3

REPORT INFORMATION
  Report Type: Spontaneous
  Country: US (occurrence: None)
  Receive Date: 20240903
  Receipt Date: 20240903
  Transmission Date: 20241017
  Serious: Yes (Other)
  Sender: Public
  Company Number: None

PATIENT
  Age: 58 Year
  Sex: Female
  Weight: 76.5 kg

DRUGS (6)
  1. SEMAGLUTIDE [Suspect]
     Active Substance: SEMAGLUTIDE
     Indication: Weight decreased
     Dosage: OTHER QUANTITY : 1 INJECTION(S);?OTHER FREQUENCY : ONCE PER WEEK;?
     Route: 030
     Dates: start: 20240411, end: 20240801
  2. Aripiprozole [Concomitant]
  3. HYDROCHLOROTHIAZIDE [Concomitant]
     Active Substance: HYDROCHLOROTHIAZIDE
  4. limotrigine [Concomitant]
  5. MODAFINIL [Concomitant]
  6. LISINOPRIL [Concomitant]

REACTIONS (1)
  - Lupus-like syndrome [None]
